FAERS Safety Report 6121220-4 (Version None)
Quarter: 2009Q1

REPORT INFORMATION
  Report Type: 
  Country: None (occurrence: None)
  Receive Date: 20090312
  Receipt Date: 20090312
  Transmission Date: 20090719
  Serious: Yes (Hospitalization)
  Sender: FDA-Public Use
  Company Number: None

PATIENT
  Age: 52 Year
  Sex: Female
  Weight: 63.5036 kg

DRUGS (1)
  1. BUPROPION HCL [Suspect]
     Indication: MENOPAUSE
     Dosage: XL 300MG ONCE A DAY PO
     Route: 048
     Dates: start: 20090223, end: 20090305

REACTIONS (1)
  - PARTIAL SEIZURES [None]
